FAERS Safety Report 5149564-3 (Version None)
Quarter: 2006Q4

REPORT INFORMATION
  Report Type: 
  Country: None (occurrence: None)
  Receive Date: 20061113
  Receipt Date: 20060508
  Transmission Date: 20070319
  Serious: No
  Sender: FDA-Public Use
  Company Number: US-GLAXOSMITHKLINE-A0604662A

PATIENT
  Age: 86 Year
  Sex: Female

DRUGS (7)
  1. COREG [Suspect]
     Indication: DRUG USE FOR UNKNOWN INDICATION
     Dosage: 1TAB TWICE PER DAY
     Route: 048
     Dates: start: 20060413
  2. COZAAR [Concomitant]
  3. HYDROCHLOROTHIAZIDE [Concomitant]
  4. PEPCID [Concomitant]
  5. ISORBID [Concomitant]
  6. IBUPROFEN [Concomitant]
  7. FOSAMAX [Concomitant]

REACTIONS (2)
  - DECUBITUS ULCER [None]
  - PAIN IN EXTREMITY [None]
